FAERS Safety Report 19369293 (Version 5)
Quarter: 2021Q4

REPORT INFORMATION
  Report Type: Report from Study
  Country: CZ (occurrence: None)
  Receive Date: 20210603
  Receipt Date: 20211125
  Transmission Date: 20220303
  Serious: Yes (Hospitalization)
  Sender: FDA-Public Use
  Company Number: CZ-ROCHE-2840816

PATIENT
  Age: 41 Year
  Sex: Female
  Weight: 47.6 kg

DRUGS (13)
  1. ATEZOLIZUMAB [Suspect]
     Active Substance: ATEZOLIZUMAB
     Indication: Triple negative breast cancer
     Dosage: 25/MAY/2021, MOST RECENT DOSE (840 MG)
     Route: 041
     Dates: start: 20201229
  2. PACLITAXEL [Suspect]
     Active Substance: PACLITAXEL
     Indication: Triple negative breast cancer
     Dosage: 25/MAY/2021, MOST RECENT DOSE 145 MG/M2
     Route: 042
     Dates: start: 20201229
  3. EUTHYROX [Concomitant]
     Active Substance: LEVOTHYROXINE SODIUM
     Dates: start: 2008
  4. BROMAZEPAM [Concomitant]
     Active Substance: BROMAZEPAM
     Indication: Prophylaxis
     Dates: start: 202011
  5. PARALEN (CZECH REPUBLIC) [Concomitant]
     Dates: start: 20210110
  6. BELOSALIC [Concomitant]
     Route: 061
     Dates: start: 20210216
  7. BETAMETHASONE [Concomitant]
     Active Substance: BETAMETHASONE
     Dosage: 1 OTHER
     Route: 061
     Dates: start: 20210308
  8. FUCIDIN [Concomitant]
     Active Substance: FUSIDATE SODIUM
     Dates: start: 20210216
  9. BILASTINE [Concomitant]
     Active Substance: BILASTINE
     Dates: start: 20210315
  10. BISULEPIN [Concomitant]
     Active Substance: BISULEPIN
     Dates: start: 20210315
  11. CLOBETASOL [Concomitant]
     Active Substance: CLOBETASOL
     Dosage: 1 OTHER
     Route: 061
     Dates: start: 20210315
  12. CLINDAMYCIN [Concomitant]
     Active Substance: CLINDAMYCIN
     Dates: start: 20210531, end: 20210604
  13. DAIVOBET [Concomitant]
     Active Substance: BETAMETHASONE DIPROPIONATE\CALCIPOTRIENE
     Dates: start: 20210531

REACTIONS (1)
  - Catheter site inflammation [Recovered/Resolved]

NARRATIVE: CASE EVENT DATE: 20210531
